FAERS Safety Report 8727195 (Version 2)
Quarter: 2013Q4

REPORT INFORMATION
  Report Type: Spontaneous
  Country: US (occurrence: US)
  Receive Date: 20120816
  Receipt Date: 20131129
  Transmission Date: 20140711
  Serious: No
  Sender: FDA-Public Use
  Company Number: US-ASTRAZENECA-2012SE55344

PATIENT
  Age: 62 Year
  Sex: Female

DRUGS (6)
  1. NEXIUM [Suspect]
     Route: 048
  2. CRESTOR [Suspect]
     Route: 048
  3. ATACAND [Suspect]
     Indication: HYPERTENSION
     Route: 048
  4. ATACAND [Suspect]
     Indication: HYPERTENSION
     Dosage: GENERIC
     Route: 065
  5. INSULIN [Concomitant]
  6. LIBRAX [Concomitant]

REACTIONS (7)
  - Hypertension [Unknown]
  - Diabetes mellitus [Unknown]
  - Balance disorder [Unknown]
  - Decreased appetite [Unknown]
  - Fatigue [Unknown]
  - Headache [Unknown]
  - Dizziness [Unknown]
